FAERS Safety Report 8902703 (Version 1)
Quarter: 2012Q4

REPORT INFORMATION
  Report Type: 
  Country: CA (occurrence: CA)
  Receive Date: 20121112
  Receipt Date: 20121112
  Transmission Date: 20130627
  Serious: Yes (Hospitalization)
  Sender: FDA-Public Use
  Company Number: CA-BRISTOL-MYERS SQUIBB COMPANY-17104803

PATIENT
  Age: 45 Year
  Sex: Female

DRUGS (5)
  1. ABILIFY [Suspect]
     Dosage: 5 mg after 1 week
  2. PAXIL [Suspect]
  3. GABAPENTIN [Suspect]
  4. SEROQUEL [Suspect]
  5. ZOPICLONE [Suspect]

REACTIONS (1)
  - Serotonin syndrome [Unknown]
